FAERS Safety Report 7402507-1 (Version None)
Quarter: 2011Q2

REPORT INFORMATION
  Report Type: 
  Country: None (occurrence: None)
  Receive Date: 20110408
  Receipt Date: 20110401
  Transmission Date: 20111010
  Serious: Yes (Death, Hospitalization, Other)
  Sender: FDA-Public Use
  Company Number: PHHY2011US03434

PATIENT
  Sex: Female

DRUGS (2)
  1. CELLCEPT [Concomitant]
  2. RECLAST [Suspect]
     Dosage: 5 MG
     Route: 042
     Dates: start: 20091022

REACTIONS (20)
  - EMPHYSEMA [None]
  - PULMONARY HYPERTENSION [None]
  - GASTROOESOPHAGEAL REFLUX DISEASE [None]
  - LUNG DISORDER [None]
  - HYPOTENSION [None]
  - DEATH [None]
  - INTERSTITIAL LUNG DISEASE [None]
  - IMMUNOSUPPRESSION [None]
  - OEDEMA [None]
  - PELVIC FLUID COLLECTION [None]
  - LEUKOCYTOSIS [None]
  - ACUTE RESPIRATORY FAILURE [None]
  - BLADDER DILATATION [None]
  - FLUID OVERLOAD [None]
  - COR PULMONALE [None]
  - PELVIC FRACTURE [None]
  - PNEUMONIA [None]
  - PULMONARY FIBROSIS [None]
  - FALL [None]
  - FRACTURED SACRUM [None]
